FAERS Safety Report 13347197 (Version 2)
Quarter: 2017Q1

REPORT INFORMATION
  Report Type: Report from Study
  Country: PH (occurrence: PH)
  Receive Date: 20170317
  Receipt Date: 20170321
  Transmission Date: 20170428
  Serious: Yes (Other)
  Sender: FDA-Public Use
  Company Number: PH-JNJFOC-20170316156

PATIENT
  Age: 26 Year
  Sex: Male
  Weight: 63 kg

DRUGS (17)
  1. DIPHENHYDRAMINE. [Concomitant]
     Active Substance: DIPHENHYDRAMINE
     Dosage: AT BEDTIME
     Route: 065
     Dates: start: 20161111, end: 20161125
  2. PYRAZINAMIDE. [Suspect]
     Active Substance: PYRAZINAMIDE
     Indication: TUBERCULOSIS
     Route: 048
     Dates: start: 20160906
  3. BEDAQUILINE [Suspect]
     Active Substance: BEDAQUILINE
     Indication: TUBERCULOSIS
     Route: 048
     Dates: start: 20160906, end: 20160919
  4. INDOMETHACIN. [Concomitant]
     Active Substance: INDOMETHACIN
     Route: 065
     Dates: start: 20160919, end: 20160922
  5. PROTHIONAMIDE [Suspect]
     Active Substance: PROTIONAMIDE
     Indication: TUBERCULOSIS
     Route: 048
     Dates: start: 20160906
  6. CYCLOSERINE. [Suspect]
     Active Substance: CYCLOSERINE
     Indication: TUBERCULOSIS
     Route: 048
     Dates: start: 20160906
  7. VITAMIN B6 [Suspect]
     Active Substance: PYRIDOXINE HYDROCHLORIDE
     Indication: TUBERCULOSIS
     Route: 048
     Dates: start: 20160906
  8. COLCHICINE. [Concomitant]
     Active Substance: COLCHICINE
     Route: 065
     Dates: start: 20160919, end: 20160925
  9. FEBUXOSTAT. [Concomitant]
     Active Substance: FEBUXOSTAT
     Route: 065
     Dates: start: 20161221, end: 20161226
  10. LEVOFLOXACIN. [Suspect]
     Active Substance: LEVOFLOXACIN
     Indication: TUBERCULOSIS
     Route: 048
     Dates: start: 20160906
  11. PARA-AMINOSALICYLIC ACID [Suspect]
     Active Substance: AMINOSALICYLIC ACID
     Indication: TUBERCULOSIS
     Route: 048
     Dates: start: 20160906, end: 20160908
  12. DIPHENHYDRAMINE. [Concomitant]
     Active Substance: DIPHENHYDRAMINE
     Route: 065
     Dates: start: 20161212, end: 20161219
  13. VITAMINE A [Concomitant]
     Active Substance: RETINOL
     Route: 065
     Dates: start: 20170103, end: 20170104
  14. MEFENAMIC ACID. [Concomitant]
     Active Substance: MEFENAMIC ACID
     Route: 065
     Dates: start: 20161215, end: 20161219
  15. LANSOPRAZOLE. [Concomitant]
     Active Substance: LANSOPRAZOLE
     Indication: ABDOMINAL PAIN UPPER
     Route: 048
     Dates: start: 20170225
  16. BEDAQUILINE [Suspect]
     Active Substance: BEDAQUILINE
     Indication: TUBERCULOSIS
     Route: 048
     Dates: start: 20160920, end: 20170227
  17. CETRIZINE [Concomitant]
     Active Substance: CETIRIZINE HYDROCHLORIDE
     Dosage: AT BEDTIME
     Route: 065
     Dates: start: 20161001, end: 20161006

REACTIONS (8)
  - Dizziness [Recovered/Resolved]
  - Tinnitus [Recovered/Resolved]
  - Drug-induced liver injury [Unknown]
  - Vomiting [Unknown]
  - Musculoskeletal stiffness [Recovered/Resolved]
  - Arthralgia [Recovered/Resolved]
  - Abdominal pain upper [Unknown]
  - Insomnia [Recovered/Resolved]

NARRATIVE: CASE EVENT DATE: 20160907
